FAERS Safety Report 26153959 (Version 1)
Quarter: 2025Q4

REPORT INFORMATION
  Report Type: Other
  Country: GB (occurrence: GB)
  Receive Date: 20251215
  Receipt Date: 20251215
  Transmission Date: 20260118
  Serious: Yes (Other)
  Sender: IPCA
  Company Number: None

PATIENT

DRUGS (15)
  1. ATENOLOL [Suspect]
     Active Substance: ATENOLOL
     Indication: Product used for unknown indication
     Dosage: TAKE ONE EACH MORNING
     Route: 065
     Dates: start: 20251006, end: 20251127
  2. ALLOPURINOL [Concomitant]
     Active Substance: ALLOPURINOL
     Indication: Ill-defined disorder
     Dosage: TAKE ONE DAILY
     Route: 065
     Dates: start: 20240809
  3. AMLODIPINE [Concomitant]
     Active Substance: AMLODIPINE BESYLATE
     Indication: Ill-defined disorder
     Dosage: TAKE ONE DAILY
     Route: 065
     Dates: start: 20240809
  4. ASPIRIN [Concomitant]
     Active Substance: ASPIRIN
     Indication: Ill-defined disorder
     Dosage: TAKE ONE DAILY
     Route: 065
     Dates: start: 20240809
  5. ATORVASTATIN [Concomitant]
     Active Substance: ATORVASTATIN
     Indication: Ill-defined disorder
     Dosage: TAKE ONE DAILY AT NIGHT
     Route: 065
     Dates: start: 20240809
  6. EVOLVE HYPROMELLOSE [Concomitant]
     Indication: Ill-defined disorder
     Dosage: ONE DROP TO EACH EYE SEVERAL TIMES A DAY FOR IT...
     Route: 065
     Dates: start: 20240809
  7. NITROGLYCERIN [Concomitant]
     Active Substance: NITROGLYCERIN
     Indication: Ill-defined disorder
     Dosage: PUT ONE PUFF UNDER THE TONGUE AS NEEDED FOR CHE...
     Route: 065
     Dates: start: 20240809
  8. IBUPROFEN [Concomitant]
     Active Substance: IBUPROFEN
     Indication: Ill-defined disorder
     Dosage: APPLY 3-4 TIMES/DAY
     Route: 065
     Dates: start: 20240809
  9. LANSOPRAZOLE [Concomitant]
     Active Substance: LANSOPRAZOLE
     Indication: Ill-defined disorder
     Dosage: TAKE ONE ONCE DAILY
     Route: 065
     Dates: start: 20240809
  10. RAMIPRIL [Concomitant]
     Active Substance: RAMIPRIL
     Indication: Ill-defined disorder
     Dosage: TAKE ONE CAPSULE TWICE A DAY
     Route: 065
     Dates: start: 20240809
  11. ALBUTEROL [Concomitant]
     Active Substance: ALBUTEROL
     Indication: Ill-defined disorder
     Dosage: INHALE 2 DOSES AS NEEDED
     Dates: start: 20240809
  12. SYMBICORT [Concomitant]
     Active Substance: BUDESONIDE\FORMOTEROL FUMARATE DIHYDRATE
     Indication: Ill-defined disorder
     Dosage: 2 PUFFS TWICE PER DAYINCREASE TO 3 O  4 PUFFS T...
     Dates: start: 20240809
  13. TICAGRELOR [Concomitant]
     Active Substance: TICAGRELOR
     Indication: Ill-defined disorder
     Dosage: TAKE ONE TWICE A DAY
     Route: 065
     Dates: start: 20240809
  14. FOLIC ACID [Concomitant]
     Active Substance: FOLIC ACID
     Indication: Ill-defined disorder
     Dosage: TAKE ONE DAILY LONG TERM
     Route: 065
     Dates: start: 20241011
  15. FUROSEMIDE [Concomitant]
     Active Substance: FUROSEMIDE
     Indication: Ill-defined disorder
     Dosage: TAKE ONE EACH MORNING
     Route: 065
     Dates: start: 20250417

REACTIONS (1)
  - Sleep terror [Recovered/Resolved]
